FAERS Safety Report 8890674 (Version 1)
Quarter: 2012Q4

REPORT INFORMATION
  Report Type: 
  Country: DK (occurrence: BR)
  Receive Date: 20121106
  Receipt Date: 20121106
  Transmission Date: 20130627
  Serious: Yes (Other)
  Sender: FDA-Public Use
  Company Number: BR-MUTUAL PHARMACEUTICAL COMPANY, INC.-IBPF20120006

PATIENT
  Age: 50 Year
  Sex: Male

DRUGS (1)
  1. BUPROVIL [Suspect]
     Indication: DRUG USE FOR UNKNOWN INDICATION
     Dosage: 1 Dosage forms
     Route: 048
     Dates: start: 20121023, end: 20121023

REACTIONS (2)
  - Hypersensitivity [Recovered/Resolved]
  - Accidental exposure to product [None]
